FAERS Safety Report 18506531 (Version 1)
Quarter: 2020Q4

REPORT INFORMATION
  Report Type: Spontaneous
  Country: JP (occurrence: JP)
  Receive Date: 20201116
  Receipt Date: 20201116
  Transmission Date: 20210114
  Serious: Yes (Hospitalization, Other)
  Sender: FDA-Public Use
  Company Number: JP-PFIZER INC-2020445679

PATIENT
  Age: 3 Year
  Sex: Female
  Weight: 15 kg

DRUGS (7)
  1. METHOTREXATE. [Suspect]
     Active Substance: METHOTREXATE
     Dosage: 5000 MG/M2 (5 G/M2 )
     Route: 041
     Dates: start: 20200908, end: 20200909
  2. SAXIZON [Concomitant]
     Active Substance: HYDROCORTISONE SODIUM SUCCINATE
     Dosage: UNK
     Route: 065
  3. METHOTREXATE. [Suspect]
     Active Substance: METHOTREXATE
     Indication: MEDULLOBLASTOMA
     Dosage: 12 MG
     Route: 029
     Dates: start: 20200901, end: 20200904
  4. CISPLATIN MARUKO [Suspect]
     Active Substance: CISPLATIN
     Indication: MEDULLOBLASTOMA
     Dosage: 90 MG/M2
     Route: 041
     Dates: start: 20200903, end: 20200903
  5. ENDOXAN [CYCLOPHOSPHAMIDE] [Suspect]
     Active Substance: CYCLOPHOSPHAMIDE
     Indication: MEDULLOBLASTOMA
     Dosage: 500 MG/M2
     Route: 041
     Dates: start: 20200901, end: 20200903
  6. UROMITEXAN [Concomitant]
     Active Substance: MESNA
     Dosage: UNK
     Route: 065
  7. ONCOVIN [Suspect]
     Active Substance: VINCRISTINE SULFATE
     Indication: MEDULLOBLASTOMA
     Dosage: 1.5 MG/M2
     Route: 042
     Dates: start: 20200901, end: 20200901

REACTIONS (6)
  - Venoocclusive liver disease [Not Recovered/Not Resolved]
  - Product use in unapproved indication [Unknown]
  - Platelet count decreased [Unknown]
  - Product use issue [Unknown]
  - Febrile neutropenia [Unknown]
  - Off label use [Unknown]

NARRATIVE: CASE EVENT DATE: 20200901
